FAERS Safety Report 6936740-X (Version None)
Quarter: 2010Q3

REPORT INFORMATION
  Report Type: 
  Country: None (occurrence: None)
  Receive Date: 20100823
  Receipt Date: 20100812
  Transmission Date: 20110219
  Serious: Yes (Other)
  Sender: FDA-Public Use
  Company Number: NL-JNJFOC-20100705158

PATIENT
  Sex: Female

DRUGS (2)
  1. REMICADE [Suspect]
     Indication: PRODUCT USED FOR UNKNOWN INDICATION
     Dosage: INITIATED 4 YEARS AGO
     Route: 042
  2. REMICADE [Suspect]
     Route: 042

REACTIONS (2)
  - PHOTOSENSITIVITY REACTION [None]
  - TOOTH DISORDER [None]
